FAERS Safety Report 21591387 (Version 1)
Quarter: 2022Q4

REPORT INFORMATION
  Report Type: Report from Study
  Country: US (occurrence: US)
  Receive Date: 20221114
  Receipt Date: 20221114
  Transmission Date: 20230113
  Serious: No
  Sender: FDA-Public Use
  Company Number: US-ABBVIE-22K-163-4381358-00

PATIENT
  Age: 63 Year
  Sex: Female

DRUGS (4)
  1. SKYRIZI [Suspect]
     Active Substance: RISANKIZUMAB-RZAA
     Indication: Psoriasis
     Dosage: STRENGTH: 75 MG
     Route: 058
  2. SKYRIZI [Suspect]
     Active Substance: RISANKIZUMAB-RZAA
     Dosage: STRENGTH: 75 MG
     Route: 058
     Dates: end: 20220309
  3. TALTZ [Concomitant]
     Active Substance: IXEKIZUMAB
     Indication: Product used for unknown indication
     Dosage: STOP DATE: 2022
     Dates: start: 20220509
  4. PFIZER-BIONTECH COVID-19 VACCINE [Concomitant]
     Active Substance: TOZINAMERAN
     Indication: COVID-19 immunisation
     Dosage: TIME INTERVAL: TOTAL
     Route: 030

REACTIONS (14)
  - Pain [Recovered/Resolved]
  - Grip strength decreased [Recovering/Resolving]
  - Joint swelling [Recovering/Resolving]
  - Gait disturbance [Not Recovered/Not Resolved]
  - Mobility decreased [Recovered/Resolved]
  - Alopecia [Recovering/Resolving]
  - Neuralgia [Not Recovered/Not Resolved]
  - Insomnia [Not Recovered/Not Resolved]
  - Illness [Unknown]
  - Disturbance in attention [Unknown]
  - Drug ineffective [Recovered/Resolved]
  - Psoriasis [Recovering/Resolving]
  - Fatigue [Unknown]
  - Psoriasis [Recovered/Resolved]

NARRATIVE: CASE EVENT DATE: 20220101
